FAERS Safety Report 17884314 (Version 1)
Quarter: 2020Q2

REPORT INFORMATION
  Report Type: Spontaneous
  Country: DE (occurrence: DE)
  Receive Date: 20200611
  Receipt Date: 20200611
  Transmission Date: 20200714
  Serious: Yes (Hospitalization)
  Sender: FDA-Public Use
  Company Number: DE-ACCORD-184976

PATIENT
  Age: 78 Year
  Sex: Female
  Weight: 91 kg

DRUGS (10)
  1. METAMIZOLE SODIUM [Concomitant]
     Active Substance: METAMIZOLE SODIUM
     Dosage: STRENGTH-500 MG, 0-0-30-0
  2. VITAMIN B12 INJECT JENAPHARM [Concomitant]
     Dosage: STRENGTH-1000MICROG, 1 MG, 1-0-0-0
  3. CAPECITABINE. [Suspect]
     Active Substance: CAPECITABINE
     Indication: PRODUCT USED FOR UNKNOWN INDICATION
     Dosage: 1250 MG/M2, 1-0-1-0
  4. SOLIFENACIN/SOLIFENACIN SUCCINATE [Concomitant]
     Active Substance: SOLIFENACIN SUCCINATE
     Dosage: STRENGTH-10 MG, 0-0-1-0
  5. PANTOPRAZOLE [Concomitant]
     Active Substance: PANTOPRAZOLE
     Dosage: STRENGTH-40 MG, 1-0-0-0
  6. PREDNISOLONE. [Concomitant]
     Active Substance: PREDNISOLONE
     Dosage: STRENGTH-5 MG, 0-0-0.5-0
  7. METOCLOPRAMIDE. [Concomitant]
     Active Substance: METOCLOPRAMIDE
     Dosage: STRENGTH-10 MG, 1-0-1-0
  8. ALLOPURINOL. [Suspect]
     Active Substance: ALLOPURINOL
     Indication: PRODUCT USED FOR UNKNOWN INDICATION
     Dosage: 300 MG, 0-0-1-0
  9. RIVAROXABAN [Concomitant]
     Active Substance: RIVAROXABAN
     Dosage: STRENGTH-20 MG, 1-0-0-0
  10. METOPROLOL. [Concomitant]
     Active Substance: METOPROLOL
     Dosage: STRENGTH-95 MG, 0.5-0-0.5-0

REACTIONS (4)
  - Electrolyte imbalance [Unknown]
  - Liver function test abnormal [Unknown]
  - Wound [Unknown]
  - Metastases to liver [Unknown]
